FAERS Safety Report 4763150-6 (Version None)
Quarter: 2005Q3

REPORT INFORMATION
  Report Type: 
  Country: None (occurrence: None)
  Receive Date: 20050831
  Receipt Date: 20050816
  Transmission Date: 20060218
  Serious: Yes (Hospitalization)
  Sender: FDA-Public Use
  Company Number: THYM-10706

PATIENT
  Age: 58 Year
  Sex: Female
  Weight: 92 kg

DRUGS (3)
  1. THYMOGLOBULIN [Suspect]
     Indication: RENAL TRANSPLANT
     Dosage: 100 MG QD, IV
     Route: 042
     Dates: start: 20050629, end: 20050706
  2. PROGRAF [Concomitant]
  3. MYCOPHENOLATE MOFETIL [Concomitant]

REACTIONS (3)
  - BLOOD CREATININE INCREASED [None]
  - GRANULOMA [None]
  - NEPHRITIS INTERSTITIAL [None]
